FAERS Safety Report 9495052 (Version 1)
Quarter: 2013Q3

REPORT INFORMATION
  Report Type: Spontaneous
  Country: US (occurrence: None)
  Receive Date: 20130828
  Receipt Date: 20130828
  Transmission Date: 20140515
  Serious: Yes (Other)
  Sender: FDA-Public Use
  Company Number: JPI-P-034777

PATIENT
  Age: 31 Year
  Sex: Female
  Weight: 70.31 kg

DRUGS (4)
  1. XYREM [Suspect]
     Indication: CATAPLEXY
     Route: 048
     Dates: start: 201207
  2. BUPROPRION [Suspect]
     Indication: DEPRESSION
     Dosage: (150 MG,XR FORM, 150 MG DAILY),ORAL
     Route: 048
     Dates: start: 20130802
  3. SERTRALINE HYDROCHLORIDE [Concomitant]
  4. LAMOTRIGINE [Concomitant]

REACTIONS (1)
  - Convulsion [None]
